FAERS Safety Report 21036859 (Version 1)
Quarter: 2022Q3

REPORT INFORMATION
  Report Type: Spontaneous
  Country: US (occurrence: US)
  Receive Date: 20220702
  Receipt Date: 20220702
  Transmission Date: 20221026
  Serious: No
  Sender: FDA-Public Use
  Company Number: US-NOVARTISTESTPH-NVSC2022US150631

PATIENT
  Sex: Female

DRUGS (2)
  1. COMBIPATCH [Suspect]
     Active Substance: ESTRADIOL\NORETHINDRONE ACETATE
     Indication: Blood oestrogen increased
     Dosage: 1 DOSAGE FORM OF 0.05/0.14 MG
     Route: 065
     Dates: start: 202206
  2. COMBIPATCH [Suspect]
     Active Substance: ESTRADIOL\NORETHINDRONE ACETATE
     Indication: Hormone replacement therapy
     Dosage: 1 DOSAGE FORM OF 0.05/0.25 MG
     Route: 065
     Dates: start: 20220627

REACTIONS (1)
  - Decreased appetite [Unknown]
